FAERS Safety Report 17462247 (Version 1)
Quarter: 2020Q1

REPORT INFORMATION
  Report Type: Spontaneous
  Country: US (occurrence: US)
  Receive Date: 20200226
  Receipt Date: 20200226
  Transmission Date: 20200409
  Serious: No
  Sender: FDA-Public Use
  Company Number: US-SHIRE-US202006665

PATIENT
  Sex: Female
  Weight: 63.49 kg

DRUGS (6)
  1. ADDERALL XR [Suspect]
     Active Substance: AMPHETAMINE ASPARTATE\AMPHETAMINE SULFATE\DEXTROAMPHETAMINE SACCHARATE\DEXTROAMPHETAMINE SULFATE
     Indication: ATTENTION DEFICIT/HYPERACTIVITY DISORDER
     Dosage: 30 MILLIGRAM, 2X/DAY:BID
     Route: 048
     Dates: start: 2015, end: 2019
  2. AMBIEN [Concomitant]
     Active Substance: ZOLPIDEM TARTRATE
     Indication: INSOMNIA
     Dosage: 10 MILLIGRAM, 1X/DAY:QD
     Route: 048
     Dates: start: 2016
  3. ESTRADIOL. [Concomitant]
     Active Substance: ESTRADIOL
     Indication: HYSTERECTOMY
     Dosage: 0.5 MILLIGRAM, 1X/DAY:QD
     Route: 048
     Dates: start: 201912
  4. ESTRADIOL. [Concomitant]
     Active Substance: ESTRADIOL
     Indication: HORMONE LEVEL ABNORMAL
  5. AMITIZA [Concomitant]
     Active Substance: LUBIPROSTONE
     Indication: GASTRIC DISORDER
     Dosage: 8 MILLIGRAM, 2X/DAY:BID
     Route: 048
     Dates: start: 2018
  6. AMITIZA [Concomitant]
     Active Substance: LUBIPROSTONE
     Indication: CONSTIPATION

REACTIONS (3)
  - Swelling [Unknown]
  - Cholelithiasis [Unknown]
  - Off label use [Recovered/Resolved]

NARRATIVE: CASE EVENT DATE: 2015
